FAERS Safety Report 20028128 (Version 1)
Quarter: 2021Q4

REPORT INFORMATION
  Report Type: Spontaneous
  Country: US (occurrence: US)
  Receive Date: 20211103
  Receipt Date: 20211103
  Transmission Date: 20220303
  Serious: No
  Sender: FDA-Public Use
  Company Number: US-AUROBINDO-AUR-APL-2020-048925

PATIENT
  Age: 79 Year
  Sex: Female
  Weight: 58.51 kg

DRUGS (3)
  1. ESZOPICLONE [Suspect]
     Active Substance: ESZOPICLONE
     Indication: Sleep disorder
     Dosage: 1 DOSAGE FORM, DAILY (01 TABLET AT NIGHT)
     Route: 065
     Dates: start: 20200808
  2. ESZOPICLONE [Suspect]
     Active Substance: ESZOPICLONE
     Dosage: UNK
     Route: 065
     Dates: start: 20200905
  3. SYNTHROID [Concomitant]
     Active Substance: LEVOTHYROXINE SODIUM
     Indication: Product used for unknown indication
     Dosage: 25 MILLIGRAM (HALF TABLET)
     Route: 065

REACTIONS (4)
  - Middle insomnia [Recovered/Resolved]
  - Feeding disorder [Unknown]
  - Drug ineffective [Unknown]
  - Product substitution issue [Unknown]

NARRATIVE: CASE EVENT DATE: 20200808
